FAERS Safety Report 14155023 (Version 4)
Quarter: 2018Q1

REPORT INFORMATION
  Report Type: Report from Study
  Country: None (occurrence: GB)
  Receive Date: 20171103
  Receipt Date: 20180215
  Transmission Date: 20180508
  Serious: Yes (Death)
  Sender: FDA-Public Use
  Company Number: GB-ABBVIE-17K-167-2148597-00

PATIENT
  Age: 76 Year
  Sex: Female

DRUGS (1)
  1. HUMIRA [Suspect]
     Active Substance: ADALIMUMAB
     Indication: RHEUMATOID ARTHRITIS
     Route: 058
     Dates: start: 20061228, end: 20120510

REACTIONS (2)
  - Chronic obstructive pulmonary disease [Fatal]
  - Neuroendocrine carcinoma [Fatal]

NARRATIVE: CASE EVENT DATE: 20130615
